FAERS Safety Report 22604131 (Version 1)
Quarter: 2023Q2

REPORT INFORMATION
  Report Type: Spontaneous
  Country: US (occurrence: US)
  Receive Date: 20230615
  Receipt Date: 20230615
  Transmission Date: 20230722
  Serious: Yes (Life-Threatening, Hospitalization, Other)
  Sender: FDA-Public Use
  Company Number: US-drreddys-SPO/USA/23/0166656

PATIENT
  Age: 12 Year
  Sex: Female

DRUGS (1)
  1. AMLODIPINE MALEATE [Suspect]
     Active Substance: AMLODIPINE MALEATE
     Indication: Product used for unknown indication

REACTIONS (9)
  - Multiple organ dysfunction syndrome [Recovering/Resolving]
  - Toxicity to various agents [Recovering/Resolving]
  - Haemodynamic instability [Recovering/Resolving]
  - Hypoxia [Recovering/Resolving]
  - Hypotension [Recovering/Resolving]
  - Abdominal pain [Recovering/Resolving]
  - Vomiting [Recovering/Resolving]
  - Tachycardia [Recovering/Resolving]
  - Overdose [Recovering/Resolving]
